FAERS Safety Report 10754633 (Version 1)
Quarter: 2015Q1

REPORT INFORMATION
  Report Type: Spontaneous
  Country: US (occurrence: US)
  Receive Date: 20150202
  Receipt Date: 20150202
  Transmission Date: 20150721
  Serious: No
  Sender: FDA-Public Use
  Company Number: US-BAYER-2015-010180

PATIENT
  Age: 50 Year
  Sex: Female
  Weight: 52.15 kg

DRUGS (1)
  1. CLIMARA [Suspect]
     Active Substance: ESTRADIOL
     Dosage: 0.1 MG/DAY
     Route: 062
     Dates: start: 201411

REACTIONS (3)
  - Pruritus [Recovered/Resolved]
  - Erythema [Recovering/Resolving]
  - Dry skin [Recovered/Resolved]

NARRATIVE: CASE EVENT DATE: 201411
